FAERS Safety Report 24565997 (Version 2)
Quarter: 2024Q4

REPORT INFORMATION
  Report Type: Spontaneous
  Country: US (occurrence: US)
  Receive Date: 20241030
  Receipt Date: 20241115
  Transmission Date: 20250114
  Serious: Yes (Other)
  Sender: LUPIN
  Company Number: US-LUPIN PHARMACEUTICALS INC.-2024-10522

PATIENT

DRUGS (2)
  1. AZITHROMYCIN ANHYDROUS [Suspect]
     Active Substance: AZITHROMYCIN ANHYDROUS
     Indication: Respiratory tract infection
     Dosage: 500 MILLIGRAM, QD, ON DAY 1 (2 TABLETS)
     Route: 048
     Dates: start: 202211, end: 202211
  2. AZITHROMYCIN ANHYDROUS [Suspect]
     Active Substance: AZITHROMYCIN ANHYDROUS
     Dosage: 250 MILLIGRAM, QD, ON DAYS 2 TO 5 (1 TABLET PER DAY)
     Route: 048

REACTIONS (13)
  - Loss of consciousness [Unknown]
  - Circulatory collapse [Unknown]
  - Delirium [Unknown]
  - Syncope [Unknown]
  - Dizziness [Recovered/Resolved]
  - Feeling abnormal [Unknown]
  - Disorientation [Unknown]
  - Vertigo [Unknown]
  - Migraine [Unknown]
  - Gait disturbance [Unknown]
  - Helplessness [Unknown]
  - Emotional distress [Unknown]
  - Drug ineffective [Unknown]

NARRATIVE: CASE EVENT DATE: 20221101
